FAERS Safety Report 8996860 (Version 1)
Quarter: 2013Q1

REPORT INFORMATION
  Report Type: Spontaneous
  Country: IT (occurrence: IT)
  Receive Date: 20130104
  Receipt Date: 20130104
  Transmission Date: 20140127
  Serious: Yes (Other)
  Sender: FDA-Public Use
  Company Number: IT-JNJFOC-20121008945

PATIENT
  Age: 57 Year
  Sex: Male

DRUGS (9)
  1. REMICADE [Suspect]
     Indication: PSORIATIC ARTHROPATHY
     Route: 042
     Dates: start: 20121219, end: 20121219
  2. REMICADE [Suspect]
     Indication: PSORIATIC ARTHROPATHY
     Dosage: 100 MG INJECTION FORM
     Route: 042
     Dates: start: 20110201, end: 20121011
  3. REMICADE [Suspect]
     Indication: PSORIATIC ARTHROPATHY
     Route: 042
  4. REMICADE [Suspect]
     Indication: PSORIASIS
     Route: 042
     Dates: start: 20121219, end: 20121219
  5. REMICADE [Suspect]
     Indication: PSORIASIS
     Route: 042
  6. REMICADE [Suspect]
     Indication: PSORIASIS
     Dosage: 100 MG INJECTION FORM
     Route: 042
     Dates: start: 20110201, end: 20121011
  7. PARACETAMOL AND CODEINE [Concomitant]
     Route: 048
     Dates: start: 201209
  8. HYDROCORTISONE [Concomitant]
     Indication: PREMEDICATION
     Route: 065
     Dates: start: 20121219
  9. TRIMETON [Concomitant]
     Indication: PREMEDICATION
     Route: 065
     Dates: start: 20121219

REACTIONS (6)
  - Cough [Unknown]
  - Dyspnoea [Unknown]
  - Tachycardia [Unknown]
  - Erythema [Unknown]
  - Infusion related reaction [Unknown]
  - Hypersensitivity [Recovered/Resolved]
